FAERS Safety Report 18639766 (Version 2)
Quarter: 2021Q1

REPORT INFORMATION
  Report Type: Report from Study
  Country: IL (occurrence: IL)
  Receive Date: 20201220
  Receipt Date: 20210212
  Transmission Date: 20210419
  Serious: Yes (Other)
  Sender: FDA-Public Use
  Company Number: IL-NOVOPROD-774510

PATIENT
  Age: 62 Year
  Sex: Female

DRUGS (3)
  1. OZEMPIC [Suspect]
     Active Substance: SEMAGLUTIDE
     Dosage: 1.00 MG, QW
     Route: 058
     Dates: start: 20201207
  2. CIPRODEX [CIPROFLOXACIN LACTATE] [Concomitant]
     Indication: PRODUCT USED FOR UNKNOWN INDICATION
     Dosage: UNK
     Route: 065
     Dates: start: 20201207
  3. OZEMPIC [Suspect]
     Active Substance: SEMAGLUTIDE
     Indication: TYPE 2 DIABETES MELLITUS
     Dosage: 0.5MG
     Route: 058
     Dates: start: 20201012

REACTIONS (5)
  - Suspected COVID-19 [Unknown]
  - Appetite disorder [Not Recovered/Not Resolved]
  - Inappropriate schedule of product administration [Unknown]
  - Rectal haemorrhage [Recovering/Resolving]
  - Weight loss poor [Not Recovered/Not Resolved]

NARRATIVE: CASE EVENT DATE: 20201012
